FAERS Safety Report 8225623-3 (Version None)
Quarter: 2012Q1

REPORT INFORMATION
  Report Type: 
  Country: None (occurrence: None)
  Receive Date: 20120321
  Receipt Date: 20120319
  Transmission Date: 20120608
  Serious: No
  Sender: FDA-Public Use
  Company Number: US-TEVA-328788USA

PATIENT
  Sex: Male
  Weight: 108.96 kg

DRUGS (1)
  1. PROAIR HFA [Suspect]
     Indication: ASTHMA
     Dosage: Q3-4H PRN
     Dates: start: 20060101

REACTIONS (1)
  - BLOOD ALCOHOL INCREASED [None]
